FAERS Safety Report 25101259 (Version 1)
Quarter: 2025Q1

REPORT INFORMATION
  Report Type: Spontaneous
  Country: CA (occurrence: CA)
  Receive Date: 20250320
  Receipt Date: 20250320
  Transmission Date: 20250408
  Serious: Yes (Other)
  Sender: LEO PHARM
  Company Number: None

PATIENT
  Age: 31 Year
  Sex: Female

DRUGS (1)
  1. PROTOPIC [Suspect]
     Active Substance: TACROLIMUS
     Indication: Eczema eyelids
     Dosage: 2 EVERY 1 DAYS
     Route: 003

REACTIONS (7)
  - Skin exfoliation [Recovering/Resolving]
  - Product administered at inappropriate site [Unknown]
  - Withdrawal syndrome [Recovering/Resolving]
  - Pruritus [Recovering/Resolving]
  - Staphylococcal skin infection [Recovering/Resolving]
  - Erythema [Recovering/Resolving]
  - Skin weeping [Recovering/Resolving]
